FAERS Safety Report 16267074 (Version 1)
Quarter: 2019Q2

REPORT INFORMATION
  Report Type: Spontaneous
  Country: CA (occurrence: CA)
  Receive Date: 20190502
  Receipt Date: 20190502
  Transmission Date: 20190711
  Serious: Yes (Other)
  Sender: FDA-Public Use
  Company Number: CA-ROCHE-2311297

PATIENT
  Sex: Female

DRUGS (5)
  1. HUMIRA [Concomitant]
     Active Substance: ADALIMUMAB
  2. METHOTREXATE. [Suspect]
     Active Substance: METHOTREXATE
     Indication: PRODUCT USED FOR UNKNOWN INDICATION
     Dosage: ONGOING
     Route: 065
  3. ACTEMRA [Suspect]
     Active Substance: TOCILIZUMAB
     Indication: PRODUCT USED FOR UNKNOWN INDICATION
     Route: 065
  4. XELJANZ [Suspect]
     Active Substance: TOFACITINIB CITRATE
     Indication: RHEUMATOID ARTHRITIS
     Dosage: ONGOING
     Route: 048
     Dates: start: 20190410
  5. FOLIC ACID. [Concomitant]
     Active Substance: FOLIC ACID
     Dosage: ONGOING
     Route: 065

REACTIONS (3)
  - Rheumatoid arthritis [Unknown]
  - Drug ineffective [Unknown]
  - Therapeutic product effect decreased [Unknown]
